FAERS Safety Report 6333362-9 (Version None)
Quarter: 2009Q3

REPORT INFORMATION
  Report Type: 
  Country: None (occurrence: None)
  Receive Date: 20090828
  Receipt Date: 20090819
  Transmission Date: 20100115
  Serious: Yes (Disabling)
  Sender: FDA-Public Use
  Company Number: GB-ROCHE-651710

PATIENT
  Age: 68 Year
  Sex: Male

DRUGS (5)
  1. TAMIFLU [Suspect]
     Indication: DRUG USE FOR UNKNOWN INDICATION
     Route: 065
     Dates: start: 20090713, end: 20090719
  2. OXYCONTIN [Concomitant]
  3. DEXAMETHASONE [Concomitant]
  4. LANSOPRAZOLE [Concomitant]
  5. GABAPENTIN [Concomitant]

REACTIONS (1)
  - BONE PAIN [None]
